FAERS Safety Report 16787142 (Version 2)
Quarter: 2020Q4

REPORT INFORMATION
  Report Type: Spontaneous
  Country: US (occurrence: US)
  Receive Date: 20190909
  Receipt Date: 20201109
  Transmission Date: 20210113
  Serious: No
  Sender: FDA-Public Use
  Company Number: US-SA-2019SA245910

PATIENT

DRUGS (8)
  1. ZYRTEC [Concomitant]
     Active Substance: CETIRIZINE HYDROCHLORIDE
  2. HYDROCHLOROTHIAZIDE. [Concomitant]
     Active Substance: HYDROCHLOROTHIAZIDE
     Dosage: UNK
  3. VENTOLIN [Concomitant]
     Active Substance: ALBUTEROL SULFATE
  4. DUPIXENT [Suspect]
     Active Substance: DUPILUMAB
     Indication: DERMATITIS ATOPIC
     Dosage: UNK UNK, QOW
     Route: 058
     Dates: start: 20181212
  5. MONTELUKAST [Concomitant]
     Active Substance: MONTELUKAST SODIUM
     Dosage: UNK
  6. POLYMYXIN [Concomitant]
     Active Substance: POLYMYXIN
  7. FLOVENT [Concomitant]
     Active Substance: FLUTICASONE PROPIONATE
  8. FLUTICASONE. [Concomitant]
     Active Substance: FLUTICASONE

REACTIONS (5)
  - Eczema [Recovering/Resolving]
  - Rash erythematous [Not Recovered/Not Resolved]
  - Scratch [Not Recovered/Not Resolved]
  - Blepharitis [Recovering/Resolving]
  - Skin fissures [Not Recovered/Not Resolved]

NARRATIVE: CASE EVENT DATE: 201908
